FAERS Safety Report 9282552 (Version 1)
Quarter: 2013Q2

REPORT INFORMATION
  Report Type: Spontaneous
  Country: US (occurrence: None)
  Receive Date: 20130509
  Receipt Date: 20130509
  Transmission Date: 20140414
  Serious: Yes (Hospitalization)
  Sender: FDA-Public Use
  Company Number: None

PATIENT
  Age: 64 Year
  Sex: Female
  Weight: 74.7 kg

DRUGS (9)
  1. IFOSFAMIDE [Suspect]
  2. PACLITAXEL (TAXOL) [Suspect]
  3. PEGFILGRASTIM (NEULASTA) [Suspect]
  4. K PHOS NEUTRAL [Concomitant]
  5. CALCIUM 100 MG + VITAMIN D [Concomitant]
  6. MULTI VITAMIN [Concomitant]
  7. POTASSIUM [Concomitant]
  8. SERTRALINE [Concomitant]
  9. TRAZODONE [Concomitant]

REACTIONS (5)
  - Tubulointerstitial nephritis [None]
  - Tubulointerstitial nephritis [None]
  - Renal failure acute [None]
  - Anaemia [None]
  - Kidney fibrosis [None]
